FAERS Safety Report 10083898 (Version 2)
Quarter: 2014Q2

REPORT INFORMATION
  Report Type: Spontaneous
  Country: ZA (occurrence: ZA)
  Receive Date: 20140417
  Receipt Date: 20140430
  Transmission Date: 20141212
  Serious: Yes (Hospitalization)
  Sender: FDA-Public Use
  Company Number: ZA-ASTRAZENECA-2014SE25997

PATIENT
  Age: 24327 Day
  Sex: Male

DRUGS (2)
  1. SYMBICORD [Suspect]
     Indication: ASTHMA
     Dosage: 160/4.5 UG TWO TIMES A DAY
     Route: 055
  2. VENTEZE MDI [Concomitant]
     Indication: ASTHMA
     Dosage: AS REQUIRED
     Route: 055

REACTIONS (2)
  - Dyspnoea [Not Recovered/Not Resolved]
  - Insomnia [Unknown]
